FAERS Safety Report 5373710-X (Version None)
Quarter: 2007Q2

REPORT INFORMATION
  Report Type: 
  Country: None (occurrence: None)
  Receive Date: 20070628
  Receipt Date: 20070418
  Transmission Date: 20071010
  Serious: Yes (Other)
  Sender: FDA-Public Use
  Company Number: DK-DENTSPLY-E2B_00000002

PATIENT
  Sex: Female

DRUGS (1)
  1. CITANEST [Suspect]
     Route: 053
     Dates: start: 20060501

REACTIONS (5)
  - GLOSSODYNIA [None]
  - HYPOAESTHESIA ORAL [None]
  - JOINT DISLOCATION [None]
  - ORAL PAIN [None]
  - TRISMUS [None]
